FAERS Safety Report 8550485-4 (Version None)
Quarter: 2012Q3

REPORT INFORMATION
  Report Type: 
  Country: None (occurrence: None)
  Receive Date: 20120730
  Receipt Date: 20120716
  Transmission Date: 20120928
  Serious: Yes (Hospitalization, Other)
  Sender: FDA-Public Use
  Company Number: US-ELI_LILLY_AND_COMPANY-US201203000165

PATIENT
  Age: 48 Year
  Sex: Female
  Weight: 74.83 kg

DRUGS (1)
  1. CYMBALTA [Suspect]
     Indication: BACK PAIN
     Dosage: 60 MG, QD
     Route: 048

REACTIONS (13)
  - LOSS OF CONSCIOUSNESS [None]
  - BLOOD PRESSURE DECREASED [None]
  - DIZZINESS [None]
  - ASTHENIA [None]
  - LETHARGY [None]
  - SPEECH DISORDER [None]
  - BREAST SWELLING [None]
  - SWOLLEN TONGUE [None]
  - DYSGEUSIA [None]
  - MALAISE [None]
  - CRYING [None]
  - SUICIDAL IDEATION [None]
  - FATIGUE [None]
